FAERS Safety Report 9404433 (Version 4)
Quarter: 2013Q4

REPORT INFORMATION
  Report Type: Spontaneous
  Country: US (occurrence: US)
  Receive Date: 20130717
  Receipt Date: 20131002
  Transmission Date: 20140711
  Serious: No
  Sender: FDA-Public Use
  Company Number: US-PFIZER INC-2013207752

PATIENT
  Age: 69 Year
  Sex: Male

DRUGS (7)
  1. METHOTREXATE SODIUM [Suspect]
     Dosage: UNK
  2. SULFASALAZINE [Suspect]
     Dosage: UNK
  3. ENBREL [Suspect]
     Dosage: UNK
  4. HUMIRA [Suspect]
     Dosage: UNK
  5. ORENCIA [Suspect]
     Dosage: UNK
  6. RITUXAN [Suspect]
     Dosage: UNK
  7. ZOCOR [Suspect]
     Dosage: UNK

REACTIONS (1)
  - Drug hypersensitivity [Unknown]
